FAERS Safety Report 7215725-2 (Version None)
Quarter: 2011Q1

REPORT INFORMATION
  Report Type: 
  Country: None (occurrence: None)
  Receive Date: 20110104
  Receipt Date: 20110104
  Transmission Date: 20110831
  Serious: Yes (Other)
  Sender: FDA-Public Use
  Company Number: None

PATIENT
  Age: 68 Year
  Sex: Female
  Weight: 64.8644 kg

DRUGS (3)
  1. PAXIL [Suspect]
  2. EFFEXOR [Suspect]
     Indication: ANXIETY
     Dosage: 75MG QD PO
     Route: 048
     Dates: start: 19970815, end: 20101015
  3. EFFEXOR [Suspect]
     Indication: DEPRESSION
     Dosage: 75MG QD PO
     Route: 048
     Dates: start: 19970815, end: 20101015

REACTIONS (1)
  - DRUG WITHDRAWAL SYNDROME [None]
